FAERS Safety Report 12111555 (Version 1)
Quarter: 2016Q1

REPORT INFORMATION
  Report Type: Spontaneous
  Country: US (occurrence: US)
  Receive Date: 20160224
  Receipt Date: 20160224
  Transmission Date: 20160526
  Serious: No
  Sender: FDA-Public Use
  Company Number: US-JAZZ-2015-US-015604

PATIENT
  Age: 69 Year
  Sex: Male

DRUGS (10)
  1. HYDROCODONE [Concomitant]
     Active Substance: HYDROCODONE
     Dosage: 10/325
     Route: 048
  2. LIPITOR [Concomitant]
     Active Substance: ATORVASTATIN CALCIUM
     Dosage: 10 MG, QD
     Route: 048
  3. PRIALT [Suspect]
     Active Substance: ZICONOTIDE ACETATE
     Indication: PAIN
     Dosage: 0.063 ?G, QH
     Route: 037
     Dates: start: 20120706, end: 20120731
  4. PRIALT [Suspect]
     Active Substance: ZICONOTIDE ACETATE
     Dosage: 0.050 ?G, QH
     Route: 037
     Dates: start: 20120820, end: 20121009
  5. PRIALT [Suspect]
     Active Substance: ZICONOTIDE ACETATE
     Dosage: 0.042 ?G, QH
     Route: 037
     Dates: start: 20121009, end: 20121106
  6. LISINOPRIL. [Concomitant]
     Active Substance: LISINOPRIL
     Dosage: 10 MG, QD
     Route: 048
  7. PRIALT [Suspect]
     Active Substance: ZICONOTIDE ACETATE
     Dosage: 0.021 ?G, QH
     Route: 037
     Dates: start: 20121106, end: 20121219
  8. PRIALT [Suspect]
     Active Substance: ZICONOTIDE ACETATE
     Indication: PAIN IN EXTREMITY
     Dosage: 0.073 ?G, QH
     Route: 037
     Dates: start: 20120731, end: 20120820
  9. CLONAZEPAM. [Concomitant]
     Active Substance: CLONAZEPAM
     Dosage: 0.5 MG, PRN
     Route: 048
  10. MELOXICAM. [Concomitant]
     Active Substance: MELOXICAM
     Dosage: 15 MG, QD
     Route: 048

REACTIONS (6)
  - Burning sensation [Not Recovered/Not Resolved]
  - Amnesia [Not Recovered/Not Resolved]
  - Muscular weakness [Not Recovered/Not Resolved]
  - Depression [Not Recovered/Not Resolved]
  - Dizziness [Not Recovered/Not Resolved]
  - Confusional state [Not Recovered/Not Resolved]

NARRATIVE: CASE EVENT DATE: 20121219
